FAERS Safety Report 5913684-3 (Version None)
Quarter: 2008Q3

REPORT INFORMATION
  Report Type: 
  Country: None (occurrence: None)
  Receive Date: 20080909
  Receipt Date: 20070828
  Transmission Date: 20090109
  Serious: Yes (Hospitalization)
  Sender: FDA-Public Use
  Company Number: 163-20785-07081271 (0)

PATIENT
  Age: 58 Year
  Sex: Male
  Weight: 78.9 kg

DRUGS (16)
  1. THALOMID [Suspect]
     Indication: MULTIPLE MYELOMA
     Dosage: 200 MG, QD, ORAL
     Route: 048
     Dates: start: 20060222, end: 20070723
  2. VELCADE [Suspect]
     Indication: MULTIPLE MYELOMA
     Dosage: 1 MG/M2, DAYS 1, 4, 8, 11
     Dates: start: 20060219, end: 20070505
  3. DEXAMETHASONE TAB [Suspect]
     Indication: MULTIPLE MYELOMA
     Dosage: INDUCTION: 40MG CONSOLIDATION:20MG, DAYS -2 TO +1/X4 DAYS EVERY 21 DAYS
     Dates: start: 20060222, end: 20070529
  4. CISPLATIN [Suspect]
     Indication: MULTIPLE MYELOMA
     Dosage: INDUCTION: 10MG/M2 CONSOLIDATION: 7.5 MG/M2
     Dates: start: 20060222, end: 20070428
  5. ADRIAMYCIN PFS [Suspect]
     Indication: MULTIPLE MYELOMA
     Dosage: INDUCTION: 10 MG/M2 CONSOLIDATION: 7.5 MG/M2
     Dates: start: 20060222, end: 20070428
  6. CYCLOPHOSPHAMIDE [Suspect]
     Indication: MULTIPLE MYELOMA
     Dosage: INDUC:400 MG/M2 CONSOLIDATION: 7.5 MG/M2
     Dates: start: 20060222, end: 20070428
  7. ETOPOSIDE [Suspect]
     Indication: MULTIPLE MYELOMA
     Dosage: INDUCTION: 40 MG/M2 CONSOLIDATION: 30 MG/M2
     Dates: start: 20060222, end: 20070428
  8. MELPHALAN (MELPHALAN) [Suspect]
     Indication: MULTIPLE MYELOMA
     Dosage: 200 MG/M2 ; 200 MG/M2
     Dates: start: 20060701, end: 20060701
  9. MELPHALAN (MELPHALAN) [Suspect]
     Indication: MULTIPLE MYELOMA
     Dosage: 200 MG/M2 ; 200 MG/M2
     Dates: start: 20061029
  10. OXYCODONE (OXYCODONE) (5 MILLIGRAM, TABLETS) [Concomitant]
  11. MORPHINE SULFATE (MORPHINE SULFATE) (60 MILLIGRAM, TABLETS) [Concomitant]
  12. FOLIC ACID (FOLIC ACID) (TABLETS) [Concomitant]
  13. DOCUSATE SODIUM (DOCUSATE SODIUM) (100 MILLIGRAM, TABLETS) [Concomitant]
  14. ZOFRAN [Concomitant]
  15. FLUCONAZOLE (FLUCONAZOLE) (TABLETS) [Concomitant]
  16. TESTOSTERONE (TESTOSTERONE) (INJECTION) [Concomitant]

REACTIONS (1)
  - PNEUMONIA [None]
